FAERS Safety Report 5963949-4 (Version None)
Quarter: 2008Q4

REPORT INFORMATION
  Report Type: 
  Country: None (occurrence: None)
  Receive Date: 20081120
  Receipt Date: 20081111
  Transmission Date: 20090506
  Serious: Yes (Death, Hospitalization)
  Sender: FDA-Public Use
  Company Number: B0546638A

PATIENT
  Age: 14 Year
  Sex: Female

DRUGS (2)
  1. ONDANSETRON HYDROCHLORIDE [Suspect]
     Indication: VOMITING
     Dosage: 4 MG / UNK / INTRAMUSCULAR
     Route: 030
  2. ANTACID TAB [Concomitant]

REACTIONS (7)
  - CARDIOGENIC SHOCK [None]
  - CREPITATIONS [None]
  - DEPRESSED LEVEL OF CONSCIOUSNESS [None]
  - DIZZINESS [None]
  - SHOCK [None]
  - VENTRICULAR FIBRILLATION [None]
  - VENTRICULAR TACHYCARDIA [None]
